APPROVED DRUG PRODUCT: AFEDITAB CR
Active Ingredient: NIFEDIPINE
Strength: 60MG
Dosage Form/Route: TABLET, EXTENDED RELEASE;ORAL
Application: A075659 | Product #001
Applicant: WATSON LABORATORIES INC
Approved: Oct 26, 2001 | RLD: No | RS: No | Type: DISCN